FAERS Safety Report 6438978-7 (Version None)
Quarter: 2009Q4

REPORT INFORMATION
  Report Type: 
  Country: None (occurrence: None)
  Receive Date: 20091113
  Receipt Date: 20091109
  Transmission Date: 20100525
  Serious: Yes (Hospitalization)
  Sender: FDA-Public Use
  Company Number: US-ROCHE-663709

PATIENT
  Sex: Male
  Weight: 63.5 kg

DRUGS (1)
  1. CAPECITABINE [Suspect]
     Route: 048
     Dates: start: 20081010, end: 20081201

REACTIONS (1)
  - CONVULSION [None]
